FAERS Safety Report 8320651-1 (Version None)
Quarter: 2012Q1

REPORT INFORMATION
  Report Type: 
  Country: None (occurrence: None)
  Receive Date: 20120315
  Receipt Date: 20110222
  Transmission Date: 20120608
  Serious: No
  Sender: FDA-Public Use
  Company Number: PHHY2011US09052

PATIENT
  Age: 50 Year
  Sex: Female

DRUGS (5)
  1. GILENYA [Suspect]
     Indication: MULTIPLE SCLEROSIS
     Dosage: 0.5 MG, QD, ORAL
     Route: 048
     Dates: start: 20110127
  2. CYMBALTA [Concomitant]
  3. AMPYRA [Concomitant]
  4. WARFARIN SODIUM [Concomitant]
  5. AMANTADINE HCL [Concomitant]

REACTIONS (3)
  - PAIN IN EXTREMITY [None]
  - FEELING ABNORMAL [None]
  - MOVEMENT DISORDER [None]
